FAERS Safety Report 6551828-3 (Version None)
Quarter: 2010Q1

REPORT INFORMATION
  Report Type: 
  Country: None (occurrence: None)
  Receive Date: 20100120
  Receipt Date: 20100108
  Transmission Date: 20100710
  Serious: Yes (Hospitalization, Other)
  Sender: FDA-Public Use
  Company Number: CLOF-1000814

PATIENT
  Age: 66 Year
  Sex: Female

DRUGS (2)
  1. EVOLTRA (CLOFARABINE) SOLUTION FOR INFUSION [Suspect]
     Indication: ACUTE MYELOID LEUKAEMIA
     Dates: start: 20090512, end: 20090701
  2. MYLOTARG [Suspect]
     Indication: ACUTE MYELOID LEUKAEMIA
     Dosage: UNK UNK, UNK, INTRAVENOUS
     Route: 042
     Dates: start: 20090512, end: 20090701

REACTIONS (3)
  - CYTOMEGALOVIRUS CHORIORETINITIS [None]
  - EYE INFECTION TOXOPLASMAL [None]
  - NECROTISING RETINITIS [None]
